FAERS Safety Report 5342229-4 (Version None)
Quarter: 2007Q2

REPORT INFORMATION
  Report Type: 
  Country: None (occurrence: None)
  Receive Date: 20070601
  Receipt Date: 20070523
  Transmission Date: 20071010
  Serious: Yes (Other)
  Sender: FDA-Public Use
  Company Number: B0473434A

PATIENT
  Age: 25 Year
  Sex: Male

DRUGS (1)
  1. PANADOL RAPID [Suspect]
     Indication: TOOTHACHE
     Dosage: 6TAB PER DAY
     Route: 048
     Dates: start: 20000101

REACTIONS (1)
  - HEPATOCELLULAR DAMAGE [None]
